FAERS Safety Report 10626461 (Version 1)
Quarter: 2014Q4

REPORT INFORMATION
  Report Type: Spontaneous
  Country: AU (occurrence: AU)
  Receive Date: 20141204
  Receipt Date: 20141204
  Transmission Date: 20150529
  Serious: Yes (Hospitalization)
  Sender: FDA-Public Use
  Company Number: AU-MYLANLABS-2014M1011862

PATIENT

DRUGS (4)
  1. YAZ [Concomitant]
     Active Substance: DROSPIRENONE\ETHINYL ESTRADIOL
     Indication: PRODUCT USED FOR UNKNOWN INDICATION
     Dosage: UNK, QD
  2. COLOFAC                            /00139402/ [Concomitant]
     Indication: PRODUCT USED FOR UNKNOWN INDICATION
     Dosage: UNK
  3. E-MYCIN [Suspect]
     Active Substance: ERYTHROMYCIN
     Indication: EAR INFECTION
  4. E-MYCIN [Suspect]
     Active Substance: ERYTHROMYCIN
     Indication: SINUSITIS
     Dosage: 400 MG, BID
     Dates: start: 20141122, end: 20141123

REACTIONS (2)
  - Hypersensitivity [Recovered/Resolved]
  - Gastritis [Recovered/Resolved]

NARRATIVE: CASE EVENT DATE: 20141122
